FAERS Safety Report 23680324 (Version 1)
Quarter: 2024Q1

REPORT INFORMATION
  Report Type: Spontaneous
  Country: DE (occurrence: DE)
  Receive Date: 20240328
  Receipt Date: 20240328
  Transmission Date: 20240409
  Serious: Yes (Other)
  Sender: FDA-Public Use
  Company Number: DE-SKF-000099

PATIENT
  Age: 20 Year
  Sex: Male

DRUGS (18)
  1. PREGABALIN [Suspect]
     Active Substance: PREGABALIN
     Indication: Product used for unknown indication
     Route: 065
  2. .ALPHA.-PYRROLIDINOISOHEXANOPHENONE [Suspect]
     Active Substance: .ALPHA.-PYRROLIDINOISOHEXANOPHENONE
     Indication: Product used for unknown indication
     Route: 065
  3. METHAMPHETAMINE [Suspect]
     Active Substance: METHAMPHETAMINE
     Indication: Product used for unknown indication
     Route: 065
  4. AMPHETAMINE [Suspect]
     Active Substance: AMPHETAMINE
     Indication: Product used for unknown indication
     Route: 065
  5. .ALPHA.-PYRROLIDINOPENTIOPHENONE [Suspect]
     Active Substance: .ALPHA.-PYRROLIDINOPENTIOPHENONE
     Indication: Product used for unknown indication
     Route: 065
  6. BUPROPION [Suspect]
     Active Substance: BUPROPION
     Indication: Product used for unknown indication
     Route: 065
  7. METHYLPHENIDATE [Suspect]
     Active Substance: METHYLPHENIDATE
     Indication: Product used for unknown indication
     Route: 065
  8. COCAINE [Suspect]
     Active Substance: COCAINE
     Indication: Product used for unknown indication
     Route: 065
  9. BENZOYLECGONINE [Suspect]
     Active Substance: BENZOYLECGONINE
     Indication: Product used for unknown indication
     Route: 065
  10. ECGONINE METHYL ESTER [Suspect]
     Active Substance: ECGONINE METHYL ESTER
     Indication: Product used for unknown indication
     Route: 065
  11. MORPHINE [Suspect]
     Active Substance: MORPHINE
     Indication: Product used for unknown indication
     Route: 065
  12. CODEINE [Suspect]
     Active Substance: CODEINE
     Indication: Product used for unknown indication
     Route: 065
  13. LEVOMETHADONE [Suspect]
     Active Substance: LEVOMETHADONE
     Indication: Product used for unknown indication
     Route: 065
  14. LORAZEPAM [Suspect]
     Active Substance: LORAZEPAM
     Indication: Product used for unknown indication
     Route: 065
  15. CLONAZEPAM [Suspect]
     Active Substance: CLONAZEPAM
     Indication: Product used for unknown indication
     Route: 065
  16. 7-AMINOCLONAZEPAM [Suspect]
     Active Substance: 7-AMINOCLONAZEPAM
     Indication: Product used for unknown indication
     Route: 065
  17. BROMAZEPAM [Suspect]
     Active Substance: BROMAZEPAM
     Indication: Product used for unknown indication
     Route: 065
  18. DRONABINOL [Suspect]
     Active Substance: DRONABINOL
     Indication: Product used for unknown indication
     Route: 065

REACTIONS (3)
  - Substance abuse [Unknown]
  - Aggression [Unknown]
  - Screaming [Unknown]
